FAERS Safety Report 6703206-1 (Version None)
Quarter: 2010Q2

REPORT INFORMATION
  Report Type: 
  Country: None (occurrence: None)
  Receive Date: 20100430
  Receipt Date: 20100419
  Transmission Date: 20101027
  Serious: Yes (Life-Threatening, Hospitalization)
  Sender: FDA-Public Use
  Company Number: GB-RANBAXY-2010RR-33367

PATIENT
  Age: 51 Year
  Sex: Female

DRUGS (2)
  1. PARACETAMOL [Suspect]
  2. ZAPONEX [Suspect]
     Dosage: UNK
     Route: 048
     Dates: start: 20100224, end: 20100324

REACTIONS (3)
  - BLOOD POTASSIUM DECREASED [None]
  - LIVER DISORDER [None]
  - OVERDOSE [None]
